FAERS Safety Report 4907929-6 (Version None)
Quarter: 2006Q1

REPORT INFORMATION
  Report Type: 
  Country: None (occurrence: None)
  Receive Date: 20060208
  Receipt Date: 20060123
  Transmission Date: 20060701
  Serious: Yes (Hospitalization)
  Sender: FDA-Public Use
  Company Number: DSA_60461_2004

PATIENT
  Age: 40 Year
  Sex: Female

DRUGS (6)
  1. DIHYDROERGOTAMINE MESYLATE [Suspect]
     Indication: MIGRAINE
     Dosage: 10 MG DAILY
  2. DESERNIL (METHYSERGIDE MALEATE) [Suspect]
     Indication: HEADACHE
     Dosage: 1.65 MG TID PO
     Route: 048
     Dates: start: 20011001, end: 20011119
  3. PROPRANOLOL [Concomitant]
  4. ACETAMINOPHEN [Concomitant]
  5. OESTROGEN-PROGESTERONE CONTRACEPTIVE [Concomitant]
  6. ESTROGEN CONJUGATED W/ PROGESTERONE [Concomitant]

REACTIONS (20)
  - ASTHENIA [None]
  - ELECTROMYOGRAM ABNORMAL [None]
  - ERGOT POISONING [None]
  - EXTENSOR PLANTAR RESPONSE [None]
  - FATIGUE [None]
  - GAIT DISTURBANCE [None]
  - HYPERREFLEXIA [None]
  - HYPOAESTHESIA [None]
  - INTERMITTENT CLAUDICATION [None]
  - ISCHAEMIC NEUROPATHY [None]
  - LIMB DISCOMFORT [None]
  - MUSCLE DISORDER [None]
  - NERVE BLOCK [None]
  - NERVOUS SYSTEM DISORDER [None]
  - PAIN IN EXTREMITY [None]
  - PALLOR [None]
  - PARAESTHESIA [None]
  - PEDAL PULSE ABSENT [None]
  - PERIPHERAL COLDNESS [None]
  - PULSE ABNORMAL [None]
